FAERS Safety Report 24744747 (Version 1)
Quarter: 2024Q4

REPORT INFORMATION
  Report Type: Report from Study
  Country: US (occurrence: US)
  Receive Date: 20241217
  Receipt Date: 20241217
  Transmission Date: 20250114
  Serious: Yes (Other)
  Sender: BAUSCH AND LOMB
  Company Number: US-BAUSCH-BL-2024-018220

PATIENT
  Age: 69 Year
  Sex: Female

DRUGS (15)
  1. XIFAXAN [Suspect]
     Active Substance: RIFAXIMIN
     Indication: Hepatic encephalopathy
     Route: 048
  2. ATIVAN [Suspect]
     Active Substance: LORAZEPAM
     Indication: Product used for unknown indication
     Dosage: 1 TABLET 1 HOUR PRIOR TO DENTAL APPOINTMENT. MAY REPEAT IF NEEDED
     Route: 065
  3. TYLENOL [Concomitant]
     Active Substance: ACETAMINOPHEN
     Indication: Pain
     Dosage: 1 TABLET BY MOUTH EVERY 4 HOURS AS NEEDED.
     Route: 048
  4. TYLENOL [Concomitant]
     Active Substance: ACETAMINOPHEN
     Dosage: TAKE 1 TABLET BY MOUTH EVERY 4 HOURS AS NEEDED. MAX DOSE IN 24 HOUR PERIOD IS 2000 MG = 4 TABLETS IN
     Route: 048
  5. REXULTI [Concomitant]
     Active Substance: BREXPIPRAZOLE
     Indication: Product used for unknown indication
     Route: 048
  6. ATROVENT [Concomitant]
     Active Substance: IPRATROPIUM BROMIDE
     Indication: Product used for unknown indication
     Dosage: 4 TIMES DAILY
     Route: 045
  7. CHRONULAC [Concomitant]
     Active Substance: LACTULOSE
     Indication: Bowel movement irregularity
     Dosage: 10 GM/15 ML, TAKE 10 TO 15 ML TWO TO THREE TIMES DAILY TO ACHIEVE 2-3 SOFT BOWEL MOVEMENTS PER DAY
     Route: 065
  8. LACTULOSE [Concomitant]
     Active Substance: LACTULOSE
     Indication: Bowel movement irregularity
     Dosage: 10 MG/ 15 ML SOLUTION, TAKE 10-15 ML 2-3 TIMES DAILY TO GET 2-3 SOFT BOWEL MOVEMENTS PER DAY
     Route: 048
  9. MELATONIN [Concomitant]
     Active Substance: MELATONIN
     Indication: Product used for unknown indication
     Dosage: 1 CAPSULE BY MOUTH NIGHTLY
     Route: 048
  10. NAMENDA [Concomitant]
     Active Substance: MEMANTINE HYDROCHLORIDE
     Indication: Product used for unknown indication
     Route: 048
  11. CELLCEPT [Concomitant]
     Active Substance: MYCOPHENOLATE MOFETIL
     Indication: Product used for unknown indication
     Route: 048
  12. DELTASONE [Concomitant]
     Active Substance: PREDNISONE
     Indication: Product used for unknown indication
     Dosage: 1.5 TABLETS BY MOUTH (7.5 MG TOTAL) EVERY MORNING
     Route: 048
  13. SEROQUEL [Concomitant]
     Active Substance: QUETIAPINE FUMARATE
     Indication: Product used for unknown indication
     Route: 048
  14. SULFAMETHOXAZOLE\TRIMETHOPRIM [Concomitant]
     Active Substance: SULFAMETHOXAZOLE\TRIMETHOPRIM
     Indication: Product used for unknown indication
     Dosage: THREE TIMES A WEEK
     Route: 048
  15. VITAMINS [Concomitant]
     Active Substance: VITAMINS
     Indication: Product used for unknown indication
     Dosage: TAKE 1 UNIT BY MOUTH DAILY, MULTIVITAMIN GUMMY DAILY
     Route: 048

REACTIONS (2)
  - Autoimmune disorder [Not Recovered/Not Resolved]
  - Inability to afford medication [Unknown]
